FAERS Safety Report 22154547 (Version 6)
Quarter: 2023Q2

REPORT INFORMATION
  Report Type: Spontaneous
  Country: CA (occurrence: CA)
  Receive Date: 20230330
  Receipt Date: 20230520
  Transmission Date: 20230722
  Serious: Yes (Hospitalization)
  Sender: FDA-Public Use
  Company Number: CA-CELLTRION INC.-2023CA006591

PATIENT

DRUGS (5)
  1. INFLECTRA [Suspect]
     Active Substance: INFLIXIMAB-DYYB
     Indication: Colitis ulcerative
     Dosage: UNKNOWN DOSE AND FREQUENCY-WEEK 0 AT HOSPITAL
     Route: 042
     Dates: start: 20230317
  2. INFLECTRA [Suspect]
     Active Substance: INFLIXIMAB-DYYB
     Dosage: 10 MG/KG, W0, 2, 6 AND EVERY 8 WEEKS-WEEK 0 AT HOSPITAL
     Route: 042
     Dates: start: 20230317
  3. INFLECTRA [Suspect]
     Active Substance: INFLIXIMAB-DYYB
     Dosage: 10 MG/KG, W0, 2, 6 AND EVERY 8 WEEKS-WEEK 0 AT HOSPITAL
     Route: 042
     Dates: start: 20230406
  4. INFLECTRA [Suspect]
     Active Substance: INFLIXIMAB-DYYB
     Dosage: 1300MG, WEEK 6 INDUCTION
     Route: 042
     Dates: start: 20230504
  5. PREDNISONE [Concomitant]
     Active Substance: PREDNISONE
     Dosage: 1 DF UNKNOWN DOSE
     Route: 065

REACTIONS (6)
  - Condition aggravated [Not Recovered/Not Resolved]
  - Hypertension [Recovered/Resolved]
  - Weight decreased [Unknown]
  - Nausea [Unknown]
  - Nasopharyngitis [Recovering/Resolving]
  - Heart rate increased [Recovered/Resolved]

NARRATIVE: CASE EVENT DATE: 20230301
